FAERS Safety Report 7607220-3 (Version None)
Quarter: 2011Q3

REPORT INFORMATION
  Report Type: 
  Country: None (occurrence: None)
  Receive Date: 20110712
  Receipt Date: 20110712
  Transmission Date: 20111222
  Serious: Yes (Hospitalization)
  Sender: FDA-Public Use
  Company Number: None

PATIENT
  Age: 62 Year
  Sex: Male
  Weight: 98.5 kg

DRUGS (1)
  1. SPIRONOLACTONE [Suspect]
     Dosage: 100 MG AM PO
     Route: 048
     Dates: start: 20110403, end: 20110415

REACTIONS (3)
  - RENAL FAILURE ACUTE [None]
  - HYPONATRAEMIA [None]
  - HYPERKALAEMIA [None]
